FAERS Safety Report 8789772 (Version 1)
Quarter: 2012Q4

REPORT INFORMATION
  Report Type: Spontaneous
  Country: US (occurrence: None)
  Receive Date: 20120911
  Receipt Date: 20120911
  Transmission Date: 20130627
  Serious: Yes (Other)
  Sender: FDA-Public Use
  Company Number: None

PATIENT
  Sex: Male

DRUGS (1)
  1. ZELBORAF [Suspect]
     Indication: MALIGNANT MELANOMA OF SKIN
     Dosage: 4 TABLETS (960 mg) Two Times Daily By Mouth
     Route: 048
     Dates: start: 20120724

REACTIONS (7)
  - Pyrexia [None]
  - Chills [None]
  - Headache [None]
  - Back pain [None]
  - Rash erythematous [None]
  - Swelling face [None]
  - Dyspnoea [None]
